FAERS Safety Report 19151494 (Version 2)
Quarter: 2022Q2

REPORT INFORMATION
  Report Type: Spontaneous
  Country: US (occurrence: US)
  Receive Date: 20210419
  Receipt Date: 20220418
  Transmission Date: 20220721
  Serious: No
  Sender: FDA-Public Use
  Company Number: US-UCBSA-2020039839

PATIENT
  Age: 69 Year
  Sex: Female

DRUGS (3)
  1. NEUPRO [Suspect]
     Active Substance: ROTIGOTINE
     Indication: Parkinson^s disease
     Dosage: 2.25 MG
     Route: 062
     Dates: start: 20171017, end: 20200923
  2. NEUPRO [Suspect]
     Active Substance: ROTIGOTINE
     Dosage: 13.5 MILLIGRAM, ONCE DAILY (QD)
     Route: 062
     Dates: start: 20201127
  3. NEUPRO [Suspect]
     Active Substance: ROTIGOTINE
     Dosage: 2,25 MG
     Dates: start: 202102, end: 2021

REACTIONS (3)
  - Application site discolouration [Unknown]
  - Application site vesicles [Unknown]
  - Drug dose titration not performed [Unknown]
